FAERS Safety Report 5739374-8 (Version None)
Quarter: 2008Q2

REPORT INFORMATION
  Report Type: 
  Country: None (occurrence: None)
  Receive Date: 20080515
  Receipt Date: 20080508
  Transmission Date: 20081010
  Serious: Yes (Life-Threatening)
  Sender: FDA-Public Use
  Company Number: GB-PFIZER INC-2008040769

PATIENT
  Age: 42 Year
  Sex: Female

DRUGS (1)
  1. CHANTIX [Suspect]
     Indication: SMOKING CESSATION THERAPY
     Dates: start: 20080220, end: 20080402

REACTIONS (3)
  - AGGRESSION [None]
  - MOOD SWINGS [None]
  - PHYSICAL ASSAULT [None]
